FAERS Safety Report 9184445 (Version 1)
Quarter: 2013Q1

REPORT INFORMATION
  Report Type: Spontaneous
  Country: GB (occurrence: GB)
  Receive Date: 20130322
  Receipt Date: 20130322
  Transmission Date: 20140127
  Serious: Yes (Hospitalization, Other)
  Sender: FDA-Public Use
  Company Number: GB-PFIZER INC-2013088453

PATIENT
  Age: 28 Year
  Sex: Female
  Weight: 76.5 kg

DRUGS (1)
  1. DEPO-PROVERA [Suspect]
     Indication: CONTRACEPTION
     Dosage: 150 MG, UNK
     Route: 030
     Dates: start: 20121220

REACTIONS (2)
  - Ruptured ectopic pregnancy [Recovered/Resolved]
  - Drug ineffective [Unknown]
